FAERS Safety Report 24697980 (Version 1)
Quarter: 2024Q4

REPORT INFORMATION
  Report Type: Spontaneous
  Country: US (occurrence: US)
  Receive Date: 20241204
  Receipt Date: 20241204
  Transmission Date: 20250114
  Serious: No
  Sender: SANOFI AVENTIS
  Company Number: US-SA-2024SA355936

PATIENT
  Sex: Male

DRUGS (3)
  1. DUPIXENT [Suspect]
     Active Substance: DUPILUMAB
     Indication: Dermatitis atopic
     Dosage: 300.000MG QOW
     Route: 058
     Dates: start: 20211210
  2. EMTRICITABINE\TENOFOVIR [Concomitant]
     Active Substance: EMTRICITABINE\TENOFOVIR
     Dosage: 200-300
  3. AMLODIPINE [Concomitant]
     Active Substance: AMLODIPINE BESYLATE

REACTIONS (1)
  - Drug ineffective [Unknown]
